FAERS Safety Report 8161609-5 (Version None)
Quarter: 2012Q1

REPORT INFORMATION
  Report Type: 
  Country: None (occurrence: None)
  Receive Date: 20120224
  Receipt Date: 20120210
  Transmission Date: 20120608
  Serious: Yes (Hospitalization)
  Sender: FDA-Public Use
  Company Number: CA-MYLANLABS-2012S1003104

PATIENT
  Age: 36 Year
  Sex: Female

DRUGS (6)
  1. TOPIRAMATE [Suspect]
     Route: 048
  2. ZUCLOPENTHIXOL [Concomitant]
     Route: 048
  3. CITALOPRAM HYDROBROMIDE [Concomitant]
     Route: 048
  4. BENZTROPINE MESYLATE [Concomitant]
     Route: 048
  5. CLONAZEPAM [Concomitant]
     Route: 048
  6. LAMOTRIGINE [Concomitant]
     Dosage: 300MG QHS
     Route: 048

REACTIONS (4)
  - HEADACHE [None]
  - HEMIPARESIS [None]
  - DYSPHORIA [None]
  - HYPOTENSION [None]
